FAERS Safety Report 5858200-X (Version None)
Quarter: 2008Q3

REPORT INFORMATION
  Report Type: 
  Country: None (occurrence: None)
  Receive Date: 20080826
  Receipt Date: 20080822
  Transmission Date: 20090109
  Serious: Yes (Hospitalization)
  Sender: FDA-Public Use
  Company Number: A0730992A

PATIENT
  Age: 53 Year
  Sex: Male
  Weight: 106.4 kg

DRUGS (7)
  1. AVANDIA [Suspect]
     Route: 048
     Dates: start: 20051101, end: 20070501
  2. METFORMIN HCL [Concomitant]
     Dates: start: 20010101
  3. GLUCOPHAGE [Concomitant]
     Dates: start: 20010101
  4. SYNTHROID [Concomitant]
  5. DURAGESIC-100 [Concomitant]
  6. RAMIPRIL [Concomitant]
  7. NEURONTIN [Concomitant]

REACTIONS (4)
  - ANAEMIA [None]
  - CEREBROVASCULAR ACCIDENT [None]
  - MIGRAINE [None]
  - RENAL DISORDER [None]
